FAERS Safety Report 6456727-3 (Version None)
Quarter: 2009Q4

REPORT INFORMATION
  Report Type: 
  Country: None (occurrence: None)
  Receive Date: 20091124
  Receipt Date: 20091124
  Transmission Date: 20100525
  Serious: Yes (Death, Hospitalization)
  Sender: FDA-Public Use
  Company Number: None

PATIENT
  Sex: Male
  Weight: 148.9 kg

DRUGS (8)
  1. TAXOTERE [Suspect]
     Dosage: 750 MG
  2. PREDNISONE [Suspect]
     Dosage: 740 MG
  3. CASODEX [Suspect]
     Dosage: 6000 MG
  4. LIPITOR [Concomitant]
  5. METFORMIN HCL [Concomitant]
  6. NORVASEN [Concomitant]
  7. SYNTHROID [Concomitant]
  8. TAMBOCOR [Concomitant]

REACTIONS (11)
  - ACUTE RESPIRATORY DISTRESS SYNDROME [None]
  - ATRIAL FIBRILLATION [None]
  - CARDIAC FAILURE CONGESTIVE [None]
  - DEEP VEIN THROMBOSIS [None]
  - EMPHYSEMA [None]
  - PNEUMOCYSTIS JIROVECI PNEUMONIA [None]
  - PNEUMOMEDIASTINUM [None]
  - PNEUMOPERICARDIUM [None]
  - PNEUMOTHORAX [None]
  - PULMONARY EMBOLISM [None]
  - RECTAL HAEMORRHAGE [None]
